FAERS Safety Report 9838433 (Version 1)
Quarter: 2014Q1

REPORT INFORMATION
  Report Type: Spontaneous
  Country: DE (occurrence: DE)
  Receive Date: 20140123
  Receipt Date: 20140123
  Transmission Date: 20141002
  Serious: Yes (Hospitalization)
  Sender: FDA-Public Use
  Company Number: DE-SA-2014SA008399

PATIENT
  Sex: Female
  Weight: 55 kg

DRUGS (9)
  1. ARAVA [Suspect]
     Indication: RHEUMATOID ARTHRITIS
     Route: 048
     Dates: start: 20080526
  2. TOFACITINIB CITRATE [Suspect]
     Indication: RHEUMATOID ARTHRITIS
     Route: 048
     Dates: start: 20101029, end: 20130606
  3. PREDNISOLONE [Concomitant]
     Indication: RHEUMATOID ARTHRITIS
     Dates: start: 20091005
  4. SALBUTAMOL [Concomitant]
     Indication: ASTHMA
     Dates: start: 200601
  5. BUDESONIDE [Concomitant]
     Indication: ASTHMA
     Dates: start: 200601
  6. PANTOPRAZOLE [Concomitant]
     Dates: start: 200812
  7. IBEROGAST [Concomitant]
     Dates: start: 20121008
  8. SIMVASTATIN [Concomitant]
     Indication: HYPERCHOLESTEROLAEMIA
     Dates: start: 20120112
  9. RAMIPRIL [Concomitant]
     Indication: HYPERTENSION
     Dates: start: 20111027, end: 201301

REACTIONS (1)
  - Hypertensive crisis [Recovered/Resolved]
